FAERS Safety Report 7821597-5 (Version None)
Quarter: 2011Q4

REPORT INFORMATION
  Report Type: 
  Country: None (occurrence: None)
  Receive Date: 20111018
  Receipt Date: 20110624
  Transmission Date: 20120403
  Serious: No
  Sender: FDA-Public Use
  Company Number: US-ASTRAZENECA-2011SE38356

PATIENT
  Age: 89 Year
  Sex: Female

DRUGS (8)
  1. HEART MED [Concomitant]
  2. SYMBICORT [Suspect]
     Indication: LUNG DISORDER
     Route: 055
     Dates: start: 20110301
  3. COUMADIN [Concomitant]
  4. CHOLESTEROL MED [Concomitant]
  5. BLOOD PRESSURE MED [Concomitant]
  6. SYMBICORT [Suspect]
     Indication: CARDIAC FAILURE CONGESTIVE
     Route: 055
     Dates: start: 20110301
  7. SYNTHROID [Concomitant]
     Indication: THYROID DISORDER
  8. WATER PILL [Concomitant]

REACTIONS (2)
  - OFF LABEL USE [None]
  - VISUAL IMPAIRMENT [None]
